FAERS Safety Report 11311594 (Version 4)
Quarter: 2015Q3

REPORT INFORMATION
  Report Type: Spontaneous
  Country: DE (occurrence: DE)
  Receive Date: 20150727
  Receipt Date: 20150915
  Transmission Date: 20151125
  Serious: Yes (Hospitalization, Other)
  Sender: FDA-Public Use
  Company Number: PHHY2015DE088716

PATIENT
  Age: 24 Year
  Sex: Male
  Weight: 89 kg

DRUGS (1)
  1. GILENYA [Suspect]
     Active Substance: FINGOLIMOD HYDROCHLORIDE
     Indication: MULTIPLE SCLEROSIS
     Dosage: 0.5 MG, QD
     Route: 048
     Dates: start: 20130710, end: 20150731

REACTIONS (4)
  - Abdominal pain [Unknown]
  - Weight decreased [Unknown]
  - Diarrhoea [Unknown]
  - Hepatitis A virus test positive [Unknown]

NARRATIVE: CASE EVENT DATE: 201506
